FAERS Safety Report 8803642 (Version 2)
Quarter: 2012Q4

REPORT INFORMATION
  Report Type: 
  Country: US (occurrence: US)
  Receive Date: 20120924
  Receipt Date: 20121107
  Transmission Date: 20130627
  Serious: Yes (Other)
  Sender: FDA-Public Use
  Company Number: US-AMGEN-USASP2012059438

PATIENT
  Age: 73 Year
  Sex: Female

DRUGS (1)
  1. ENBREL [Suspect]
     Indication: RHEUMATOID ARTHRITIS
     Dosage: 50 mg, UNK
     Route: 058
     Dates: start: 20110217

REACTIONS (6)
  - Gait disturbance [Not Recovered/Not Resolved]
  - Blood potassium decreased [Recovered/Resolved]
  - Arthralgia [Recovered/Resolved]
  - Procedural pain [Not Recovered/Not Resolved]
  - Post procedural swelling [Not Recovered/Not Resolved]
  - Pain in extremity [Not Recovered/Not Resolved]
